FAERS Safety Report 7093716-2 (Version None)
Quarter: 2010Q4

REPORT INFORMATION
  Report Type: 
  Country: None (occurrence: None)
  Receive Date: 20101110
  Receipt Date: 20101103
  Transmission Date: 20110411
  Serious: Yes (Death)
  Sender: FDA-Public Use
  Company Number: MX-ROCHE-739769

PATIENT
  Sex: Female

DRUGS (2)
  1. XELODA [Suspect]
     Indication: BREAST CANCER METASTATIC
     Dosage: FREQUENCY: THREE TABLETS TWICE DAILY.
     Route: 048
     Dates: start: 20100225, end: 20100310
  2. XELODA [Suspect]
     Dosage: FREQUENCY: TWO TABLETS TWICE DAILY .
     Route: 048
     Dates: start: 20100428, end: 20100511

REACTIONS (8)
  - ABDOMINAL PAIN [None]
  - DEATH [None]
  - DIARRHOEA [None]
  - FATIGUE [None]
  - HEADACHE [None]
  - MYALGIA [None]
  - NAUSEA [None]
  - PALMAR-PLANTAR ERYTHRODYSAESTHESIA SYNDROME [None]
